FAERS Safety Report 14512674 (Version 5)
Quarter: 2018Q2

REPORT INFORMATION
  Report Type: Spontaneous
  Country: JP (occurrence: JP)
  Receive Date: 20180209
  Receipt Date: 20180403
  Transmission Date: 20180711
  Serious: Yes (Hospitalization, Other)
  Sender: FDA-Public Use
  Company Number: JP-ELI_LILLY_AND_COMPANY-JP201802002746

PATIENT
  Age: 68 Year
  Sex: Male

DRUGS (5)
  1. ERBITUX [Suspect]
     Active Substance: CETUXIMAB
     Indication: COLON CANCER
     Dosage: 652 MG, UNKNOWN
     Route: 041
     Dates: start: 20171128
  2. TAS 102 [Suspect]
     Active Substance: TIPIRACIL HYDROCHLORIDE\TRIFLURIDINE
     Indication: COLON CANCER
     Dosage: 110 MG, UNKNOWN
     Route: 065
     Dates: start: 20171128, end: 20180107
  3. GLUCOSE                            /00203503/ [Suspect]
     Active Substance: DEXTROSE MONOHYDRATE
     Indication: PRODUCT USED FOR UNKNOWN INDICATION
     Dosage: 500 ML, DAILY
     Route: 041
     Dates: start: 20180127, end: 20180206
  4. GLUCOSE                            /00203503/ [Suspect]
     Active Substance: DEXTROSE MONOHYDRATE
     Dosage: 250 ML, DAILY
     Route: 041
     Dates: start: 20180207, end: 20180209
  5. ERBITUX [Suspect]
     Active Substance: CETUXIMAB
     Dosage: 407 MG, UNK
     Route: 041

REACTIONS (8)
  - Tetany [Recovering/Resolving]
  - Pneumonia [Not Recovered/Not Resolved]
  - Cardiac failure [Recovering/Resolving]
  - Hypomagnesaemia [Recovering/Resolving]
  - Hypocalcaemia [Not Recovered/Not Resolved]
  - Hypoalbuminaemia [Unknown]
  - Malignant neoplasm progression [Unknown]
  - Off label use [Unknown]

NARRATIVE: CASE EVENT DATE: 20180105
